FAERS Safety Report 6480985-2 (Version None)
Quarter: 2009Q4

REPORT INFORMATION
  Report Type: 
  Country: None (occurrence: None)
  Receive Date: 20091208
  Receipt Date: 20091127
  Transmission Date: 20100525
  Serious: Yes (Hospitalization, Other)
  Sender: FDA-Public Use
  Company Number: DE-BAXTER-2009BH018314

PATIENT
  Age: 51 Year
  Sex: Male
  Weight: 79 kg

DRUGS (15)
  1. ENDOXAN BAXTER [Interacting]
     Indication: GLOMERULONEPHRITIS
     Dosage: JEDEN 2. TAG 150 MG
     Route: 048
     Dates: start: 20091008
  2. UNACID PD [Suspect]
     Indication: ERYSIPELAS
     Dosage: INITIAL UNACID I.V. 1,5 G (1000 MG AMPICILLIN U. 500 MG SULBACTOM)
     Route: 048
     Dates: start: 20091019, end: 20091030
  3. UNACID 1.5 [Suspect]
     Indication: ERYSIPELAS
     Dosage: EINE DF ENTHALT: 1000 MG AMPICILLIN/500 MG SULBACTAM
     Route: 042
     Dates: start: 20091016, end: 20091019
  4. URBASON [Interacting]
     Indication: GLOMERULONEPHRITIS
     Route: 042
     Dates: start: 20091007, end: 20091009
  5. PREDNISOLONE [Interacting]
     Indication: GLOMERULONEPHRITIS
     Route: 048
     Dates: start: 20091010
  6. PANTOZOL [Concomitant]
     Indication: PROPHYLAXIS AGAINST GASTROINTESTINAL ULCER
     Route: 048
     Dates: start: 20070101
  7. MOXONIDINE [Concomitant]
     Indication: HYPERTENSION
     Route: 048
     Dates: start: 20090101
  8. BISOPROLOL [Concomitant]
     Indication: HYPERTENSION
     Route: 048
     Dates: start: 20090101
  9. TORASEMIDE [Concomitant]
     Indication: OEDEMA PERIPHERAL
     Route: 048
     Dates: start: 20090101
  10. NEPHROTRANS [Concomitant]
     Indication: RENAL IMPAIRMENT
     Route: 048
  11. AMLODIPINE [Concomitant]
     Indication: HYPERTENSION
     Route: 048
     Dates: start: 20090101
  12. RAMIPRIL [Concomitant]
     Indication: HYPERTENSION
     Route: 048
     Dates: start: 20090101
  13. RASILEZ [Concomitant]
     Indication: HYPERTENSION
     Route: 048
     Dates: start: 20090101
  14. INEGY 10/20 [Concomitant]
     Indication: HYPERLIPIDAEMIA
     Dosage: EINE DF ENTHALT: 10 MG EZETIMIB/20 MG SIMVASTATIN
     Route: 048
     Dates: start: 20090101
  15. ACETOLYT [Concomitant]
     Indication: METABOLIC ACIDOSIS
     Route: 048
     Dates: start: 20090401

REACTIONS (2)
  - ENTEROCOLITIS INFECTIOUS [None]
  - PNEUMONIA [None]
